FAERS Safety Report 4421860-4 (Version None)
Quarter: 2004Q3

REPORT INFORMATION
  Report Type: 
  Country: None (occurrence: None)
  Receive Date: 20040804
  Receipt Date: 20040713
  Transmission Date: 20050211
  Serious: No
  Sender: FDA-Public Use
  Company Number: F01200401983

PATIENT
  Age: 61 Year
  Sex: Male

DRUGS (4)
  1. (OXALIPLATIN) - SOLUTION - 130 MG/M2 [Suspect]
     Indication: COLORECTAL CANCER
     Dosage: 130 MG/M2 Q3W INTRAVENOUS NOS
     Route: 042
     Dates: start: 20040331, end: 20040331
  2. (CAPECITABINE) - TABLET - 850 MG/M2 [Suspect]
     Dosage: 850 MG/M2 TWICE DAILY FROM D1 TO D15, Q3W ORAL
     Route: 048
     Dates: start: 20040331, end: 20040414
  3. AVASTIN [Suspect]
     Dosage: 7.5 MG/KG OVER 30-90 MINUTES IV INFUSION ON DAY 1, Q3W INTRAVENOUS NOS
     Route: 042
     Dates: start: 20040331, end: 20040331
  4. DARVOCET (DEXTROPROPOXYPHEN NAPSYLATE/PARACETAMOL) [Concomitant]

REACTIONS (3)
  - CATHETER SITE DISCHARGE [None]
  - PURULENCE [None]
  - WOUND DEHISCENCE [None]
